FAERS Safety Report 17560011 (Version 1)
Quarter: 2020Q1

REPORT INFORMATION
  Report Type: Spontaneous
  Country: US (occurrence: US)
  Receive Date: 20200319
  Receipt Date: 20200319
  Transmission Date: 20200409
  Serious: No
  Sender: FDA-Public Use
  Company Number: US-PFIZER INC-2020117253

PATIENT
  Age: 62 Year
  Sex: Female

DRUGS (4)
  1. ALLERGY [BUPLEURUM FALCATUM;GLYCYRRHIZA URALENSIS;PANAX GINSENG;PINELL [Concomitant]
     Dosage: 25 MG, UNK
  2. VITAMIN D3 [Concomitant]
     Active Substance: CHOLECALCIFEROL
     Dosage: 10 UG, UNK
  3. FIBER [Concomitant]
     Active Substance: PSYLLIUM HUSK
     Dosage: 625 MG, UNK
  4. XELJANZ [Suspect]
     Active Substance: TOFACITINIB CITRATE
     Indication: RHEUMATOID ARTHRITIS
     Dosage: 5 MG, DAILY
     Route: 048
     Dates: start: 201912

REACTIONS (1)
  - Tooth abscess [Unknown]
